FAERS Safety Report 5089144-1 (Version None)
Quarter: 2006Q3

REPORT INFORMATION
  Report Type: 
  Country: None (occurrence: None)
  Receive Date: 20060727
  Receipt Date: 20060525
  Transmission Date: 20061208
  Serious: Yes (Other)
  Sender: FDA-Public Use
  Company Number: 2006070043

PATIENT
  Age: 74 Year
  Sex: Female
  Weight: 68.0396 kg

DRUGS (7)
  1. LYRICA [Suspect]
     Indication: NEUROPATHY
     Dosage: 150 MG (50 MG, 3 IN 1 D), UNKNOWN
     Dates: start: 20060501, end: 20060501
  2. HYDROCODONE BITARTRATE + ACETAMINOPHEN [Suspect]
     Indication: PAIN
  3. OXYCONTIN [Concomitant]
  4. ALEVE [Concomitant]
  5. ADVIL [Concomitant]
  6. WARFARIN SODIUM [Concomitant]
  7. MICRONASE [Concomitant]

REACTIONS (1)
  - DIARRHOEA [None]
